FAERS Safety Report 25681737 (Version 1)
Quarter: 2025Q3

REPORT INFORMATION
  Report Type: Spontaneous
  Country: TR (occurrence: TR)
  Receive Date: 20250814
  Receipt Date: 20250814
  Transmission Date: 20251020
  Serious: Yes (Other)
  Sender: ACCORD
  Company Number: TR-Accord-499467

PATIENT
  Age: 43 Year
  Sex: Female

DRUGS (5)
  1. PACLITAXEL [Suspect]
     Active Substance: PACLITAXEL
     Indication: Breast cancer stage II
     Route: 042
     Dates: start: 202212, end: 202312
  2. ZOLEDRONIC ACID [Concomitant]
     Active Substance: ZOLEDRONIC ACID
     Indication: Metastases to bone
     Dates: start: 202212
  3. PACLITAXEL [Suspect]
     Active Substance: PACLITAXEL
     Indication: Metastases to bone
     Route: 042
     Dates: start: 202212, end: 202312
  4. PACLITAXEL [Suspect]
     Active Substance: PACLITAXEL
     Indication: HER2 negative breast cancer
     Route: 042
     Dates: start: 202212, end: 202312
  5. PACLITAXEL [Suspect]
     Active Substance: PACLITAXEL
     Indication: Invasive ductal breast carcinoma
     Route: 042
     Dates: start: 202212, end: 202312

REACTIONS (1)
  - Facial paralysis [Recovering/Resolving]

NARRATIVE: CASE EVENT DATE: 20231201
